FAERS Safety Report 9476359 (Version 1)
Quarter: 2013Q3

REPORT INFORMATION
  Report Type: Spontaneous
  Country: US (occurrence: US)
  Receive Date: 20130826
  Receipt Date: 20130826
  Transmission Date: 20140515
  Serious: Yes (Other)
  Sender: FDA-Public Use
  Company Number: US-INCYTE CORPORATION-2013IN001898

PATIENT
  Age: 70 Year
  Sex: Male

DRUGS (1)
  1. JAKAFI [Suspect]
     Dosage: 15 MG, BID
     Route: 048
     Dates: end: 201211

REACTIONS (1)
  - Stem cell transplant [Unknown]
